FAERS Safety Report 20292537 (Version 1)
Quarter: 2022Q1

REPORT INFORMATION
  Report Type: Spontaneous
  Country: CN (occurrence: CN)
  Receive Date: 20220104
  Receipt Date: 20220104
  Transmission Date: 20220423
  Serious: Yes (Other)
  Sender: FDA-Public Use
  Company Number: CN-PURDUE-USA-2021-0290457

PATIENT

DRUGS (3)
  1. LIDOCAINE [Suspect]
     Active Substance: LIDOCAINE
     Indication: Postoperative analgesia
     Dosage: 1-1.5 MG/KG, SINGLE
     Route: 042
  2. LIDOCAINE [Suspect]
     Active Substance: LIDOCAINE
     Dosage: 2 MG/KG/HR FOR FOUR HOURS
     Route: 042
  3. LIDOCAINE [Suspect]
     Active Substance: LIDOCAINE
     Dosage: 1 MG/KG/HR FOR 24-28 HOURS
     Route: 042

REACTIONS (3)
  - Choking [Unknown]
  - Endotracheal intubation complication [Unknown]
  - Respiratory depression [Unknown]

NARRATIVE: CASE EVENT DATE: 20011221
